FAERS Safety Report 5257555-7 (Version None)
Quarter: 2007Q1

REPORT INFORMATION
  Report Type: 
  Country: None (occurrence: None)
  Receive Date: 20070307
  Receipt Date: 20060914
  Transmission Date: 20070707
  Serious: No
  Sender: FDA-Public Use
  Company Number: US-GLAXOSMITHKLINE-A0620189A

PATIENT
  Age: 54 Year
  Sex: Male

DRUGS (6)
  1. REQUIP [Suspect]
     Indication: PERIODIC LIMB MOVEMENT DISORDER
     Route: 048
     Dates: start: 20050101, end: 20060301
  2. PENTASA [Concomitant]
  3. AMITRIPTYLINE HCL [Concomitant]
  4. RHINOCORT [Concomitant]
  5. ALLEGRA [Concomitant]
  6. ASPIRIN [Concomitant]

REACTIONS (1)
  - DRUG INEFFECTIVE [None]
